FAERS Safety Report 8183809-0 (Version None)
Quarter: 2012Q1

REPORT INFORMATION
  Report Type: 
  Country: None (occurrence: None)
  Receive Date: 20120305
  Receipt Date: 20120223
  Transmission Date: 20120608
  Serious: Yes (Hospitalization)
  Sender: FDA-Public Use
  Company Number: FR-JNJFOC-20120212822

PATIENT
  Sex: Female

DRUGS (8)
  1. HAVLANE [Concomitant]
     Route: 065
  2. RISPERDAL [Suspect]
     Indication: MAJOR DEPRESSION
     Route: 048
  3. VALSARTAN  AND HYDROCHLOROTHIAZIDE [Suspect]
     Indication: HYPERTENSION
     Route: 048
     Dates: start: 20111208, end: 20111215
  4. OXAZEPAM [Concomitant]
     Route: 065
  5. ATHYMIL [Concomitant]
     Route: 065
  6. ATARAX [Concomitant]
     Route: 065
  7. PHENYTOIN SODIUM [Concomitant]
     Route: 065
  8. POTASSIUM CHLORIDE [Concomitant]
     Route: 065

REACTIONS (4)
  - HYPOTENSION [None]
  - LOSS OF CONSCIOUSNESS [None]
  - MALAISE [None]
  - MOTOR DYSFUNCTION [None]
